FAERS Safety Report 12463723 (Version 1)
Quarter: 2016Q2

REPORT INFORMATION
  Report Type: Spontaneous
  Country: US (occurrence: None)
  Receive Date: 20160613
  Receipt Date: 20160613
  Transmission Date: 20160815
  Serious: No
  Sender: FDA-Public Use
  Company Number: None

PATIENT
  Age: 54 Year
  Sex: Female

DRUGS (2)
  1. RIBASPHERE [Suspect]
     Active Substance: RIBAVIRIN
     Indication: ACUTE HEPATITIS C
  2. SOVALDI [Suspect]
     Active Substance: SOFOSBUVIR

REACTIONS (5)
  - Diarrhoea [None]
  - Fatigue [None]
  - Depression [None]
  - Alopecia [None]
  - Mood altered [None]

NARRATIVE: CASE EVENT DATE: 20160610
